FAERS Safety Report 5501272-2 (Version None)
Quarter: 2007Q4

REPORT INFORMATION
  Report Type: 
  Country: None (occurrence: None)
  Receive Date: 20071026
  Receipt Date: 20071019
  Transmission Date: 20080405
  Serious: Yes (Other)
  Sender: FDA-Public Use
  Company Number: CHPA2007US11037

PATIENT
  Age: 6 Year
  Sex: Male

DRUGS (1)
  1. TRIAMINIC CHEST CONGESTION TROPICAL (NCH)(PSEUDOEPHEDRINE, GUAIFENESIN [Suspect]
     Dosage: 1 TSP, BID, ORAL
     Route: 048
     Dates: start: 20071018, end: 20071018

REACTIONS (4)
  - EYE SWELLING [None]
  - EYELID OEDEMA [None]
  - RASH [None]
  - SWELLING FACE [None]
